FAERS Safety Report 6985307-6 (Version None)
Quarter: 2010Q3

REPORT INFORMATION
  Report Type: 
  Country: None (occurrence: None)
  Receive Date: 20100915
  Receipt Date: 20100903
  Transmission Date: 20110219
  Serious: No
  Sender: FDA-Public Use
  Company Number: US-PFIZER INC-2010112332

PATIENT
  Sex: Female
  Weight: 116 kg

DRUGS (8)
  1. LYRICA [Suspect]
     Indication: BACK PAIN
     Dosage: 75 MG, 2X/DAY
     Dates: start: 20100801
  2. PROZAC [Concomitant]
     Dosage: UNK
  3. MONTELUKAST [Concomitant]
     Dosage: UNK
  4. TOPIRAMATE [Concomitant]
     Dosage: UNK
  5. LEVOTHYROXINE [Concomitant]
     Dosage: UNK
  6. REMERON [Concomitant]
     Dosage: UNK
  7. CETIRIZINE HCL AND PSEUDOEPHEDRINE [Concomitant]
     Dosage: UNK
  8. FLONASE [Concomitant]
     Dosage: UNK

REACTIONS (1)
  - DRUG SCREEN POSITIVE [None]
